FAERS Safety Report 22374528 (Version 3)
Quarter: 2023Q2

REPORT INFORMATION
  Report Type: Spontaneous
  Country: JP (occurrence: JP)
  Receive Date: 20230526
  Receipt Date: 20230613
  Transmission Date: 20230722
  Serious: Yes (Other)
  Sender: FDA-Public Use
  Company Number: JP-MSD-2305JPN002614J

PATIENT
  Age: 5 Decade
  Sex: Male

DRUGS (1)
  1. CILASTATIN SODIUM\IMIPENEM [Suspect]
     Active Substance: CILASTATIN SODIUM\IMIPENEM
     Indication: Therapeutic embolisation
     Dosage: UNK
     Route: 041

REACTIONS (3)
  - Intestinal haemorrhage [Recovering/Resolving]
  - Gastrointestinal necrosis [Unknown]
  - Product use in unapproved indication [Unknown]
